FAERS Safety Report 24173156 (Version 1)
Quarter: 2024Q3

REPORT INFORMATION
  Report Type: Spontaneous
  Country: FR (occurrence: FR)
  Receive Date: 20240805
  Receipt Date: 20240805
  Transmission Date: 20241016
  Serious: Yes (Hospitalization)
  Sender: SANDOZ
  Company Number: FR-MERCK-1101FRA00151

PATIENT
  Age: 56 Year
  Sex: Male

DRUGS (16)
  1. INNOHEP [Concomitant]
     Active Substance: TINZAPARIN SODIUM
     Indication: Product used for unknown indication
     Dosage: UNK
     Route: 065
  2. ADRIAMYCIN [Interacting]
     Active Substance: DOXORUBICIN HYDROCHLORIDE
     Dosage: 59 MG, QD
     Route: 042
     Dates: start: 20090817, end: 20090818
  3. ADRIAMYCIN [Interacting]
     Active Substance: DOXORUBICIN HYDROCHLORIDE
     Indication: Teratoma
     Route: 042
     Dates: start: 20090907
  4. EMEND [Interacting]
     Active Substance: APREPITANT
     Indication: Prophylaxis of nausea and vomiting
     Dosage: STRENGTH: 125 MILLIGRAM
     Route: 048
     Dates: start: 20090907
  5. EMEND [Interacting]
     Active Substance: APREPITANT
     Dosage: STRENGTH: 125 MILLIGRAM
     Route: 048
     Dates: start: 20090817, end: 20090817
  6. EMEND [Interacting]
     Active Substance: APREPITANT
     Dosage: STRENGTH: 80 MILLIGRAM
     Route: 048
     Dates: start: 20090818, end: 20090819
  7. IFOSFAMIDE [Interacting]
     Active Substance: IFOSFAMIDE
     Dosage: 3.9 G, QD
     Route: 042
     Dates: start: 20090817, end: 20090819
  8. IFOSFAMIDE [Interacting]
     Active Substance: IFOSFAMIDE
     Indication: Teratoma
     Dosage: UNK
     Route: 042
     Dates: start: 20090907
  9. MESNA [Interacting]
     Active Substance: MESNA
     Indication: Product used for unknown indication
     Dosage: 4 MG, QD
     Route: 042
     Dates: start: 20090817, end: 20090820
  10. MESNA [Interacting]
     Active Substance: MESNA
     Dosage: 4 MG, QD
     Route: 042
     Dates: start: 20090907
  11. PRIMPERAN [Interacting]
     Active Substance: METOCLOPRAMIDE HYDROCHLORIDE
     Indication: Product used for unknown indication
     Dosage: 20 MG, BID
     Route: 042
     Dates: start: 20090817, end: 20090822
  12. PRIMPERAN [Interacting]
     Active Substance: METOCLOPRAMIDE HYDROCHLORIDE
     Dosage: 20 MG, BID
     Route: 042
     Dates: start: 20090907
  13. SOLU-MEDROL [Interacting]
     Active Substance: METHYLPREDNISOLONE SODIUM SUCCINATE
     Indication: Product used for unknown indication
     Dosage: 80 MG, QD
     Route: 042
     Dates: start: 20090907
  14. SOLU-MEDROL [Interacting]
     Active Substance: METHYLPREDNISOLONE SODIUM SUCCINATE
     Dosage: 80 MG, QD
     Route: 042
     Dates: start: 20090817, end: 20090820
  15. ONDANSETRON [Interacting]
     Active Substance: ONDANSETRON
     Indication: Product used for unknown indication
     Dosage: 8 MG, QD
     Route: 042
     Dates: start: 20090907
  16. ONDANSETRON [Interacting]
     Active Substance: ONDANSETRON
     Dosage: 8 MG, QD
     Route: 042
     Dates: start: 20090817, end: 20090820

REACTIONS (3)
  - Encephalopathy [Recovered/Resolved]
  - Encephalopathy [Recovered/Resolved]
  - Drug interaction [Recovered/Resolved]

NARRATIVE: CASE EVENT DATE: 20090820
